FAERS Safety Report 9012866 (Version 4)
Quarter: 2013Q2

REPORT INFORMATION
  Report Type: Spontaneous
  Country: US (occurrence: US)
  Receive Date: 20130114
  Receipt Date: 20130412
  Transmission Date: 20140414
  Serious: Yes (Hospitalization)
  Sender: FDA-Public Use
  Company Number: US-GILEAD-2013-0067742

PATIENT
  Sex: Female

DRUGS (4)
  1. LETAIRIS [Suspect]
     Indication: PULMONARY HYPERTENSION
     Dosage: 5 MG, QD
     Route: 048
     Dates: start: 20120927
  2. LETAIRIS [Suspect]
     Indication: RHEUMATOID ARTHRITIS
  3. REVATIO [Suspect]
  4. TYVASO [Concomitant]
     Dosage: UNK

REACTIONS (3)
  - Renal failure [Unknown]
  - Oxygen saturation decreased [Unknown]
  - Arthritis [Unknown]
